FAERS Safety Report 25911702 (Version 1)
Quarter: 2025Q4

REPORT INFORMATION
  Report Type: Spontaneous
  Country: US (occurrence: US)
  Receive Date: 20251013
  Receipt Date: 20251013
  Transmission Date: 20260117
  Serious: Yes (Hospitalization, Other)
  Sender: CIPLA
  Company Number: US-CIPLA LTD.-2025US12376

PATIENT

DRUGS (1)
  1. VIGABATRIN [Suspect]
     Active Substance: VIGABATRIN
     Indication: Seizure
     Dosage: UNK (TOTAL DAILY DOSE: 5000 MG) (G-TUBE)
     Route: 050

REACTIONS (1)
  - Pancreatitis [Unknown]
